FAERS Safety Report 9027257 (Version 2)
Quarter: 2013Q1

REPORT INFORMATION
  Report Type: Report from Study
  Country: BE (occurrence: BE)
  Receive Date: 20130123
  Receipt Date: 20130215
  Transmission Date: 20140127
  Serious: Yes (Hospitalization)
  Sender: FDA-Public Use
  Company Number: BE-COVIDIEN/TYCO HEALTHCARE/MALLINCKRODT-T201300163

PATIENT
  Age: 63 Year
  Sex: Female

DRUGS (5)
  1. EXALGO EXTENDED RELEASE [Suspect]
     Indication: CANCER PAIN
     Dosage: 48 MG/DAY
     Route: 048
     Dates: start: 20000310
  2. SOFTENE                            /00080501/ [Concomitant]
     Indication: CONSTIPATION
     Dosage: UNK
     Dates: start: 20000310, end: 20000312
  3. DULCOLAX                           /00064401/ [Concomitant]
     Indication: CONSTIPATION
     Dosage: 20 MG
     Dates: start: 20000312, end: 20000430
  4. FUROSEMIDE [Concomitant]
     Indication: OEDEMA PERIPHERAL
     Dosage: 40 MG
     Dates: start: 20000404
  5. MOTILIUM                           /00498201/ [Concomitant]
     Indication: DYSPHAGIA
     Dosage: 30 MG
     Dates: start: 20000318

REACTIONS (1)
  - Faecaloma [Recovered/Resolved]
